FAERS Safety Report 7994903-9 (Version None)
Quarter: 2011Q4

REPORT INFORMATION
  Report Type: 
  Country: None (occurrence: None)
  Receive Date: 20111220
  Receipt Date: 20111214
  Transmission Date: 20120403
  Serious: Yes (Death, Hospitalization)
  Sender: FDA-Public Use
  Company Number: JP-ROCHE-702722

PATIENT
  Sex: Female
  Weight: 47 kg

DRUGS (24)
  1. ACTEMRA [Suspect]
     Route: 041
     Dates: start: 20090714, end: 20090714
  2. ACTEMRA [Suspect]
     Route: 041
     Dates: start: 20091006, end: 20091006
  3. PREDNISOLONE [Suspect]
     Route: 048
     Dates: start: 20081205, end: 20081211
  4. PREDNISOLONE [Suspect]
     Route: 048
  5. ACTEMRA [Suspect]
     Indication: RHEUMATOID ARTHRITIS
     Route: 041
     Dates: start: 20081225, end: 20081225
  6. PREDNISOLONE [Suspect]
     Indication: RHEUMATOID ARTHRITIS
     Dosage: FORM: PERORAL AGENT
     Route: 048
     Dates: start: 20080926, end: 20081016
  7. PREDNISOLONE [Suspect]
     Route: 048
     Dates: start: 20090127, end: 20090223
  8. ACTEMRA [Suspect]
     Route: 041
     Dates: start: 20090416, end: 20090416
  9. ACTEMRA [Suspect]
     Route: 041
     Dates: start: 20090611, end: 20090611
  10. ACTEMRA [Suspect]
     Route: 041
     Dates: start: 20091202, end: 20100101
  11. PREDNISOLONE [Suspect]
     Route: 048
     Dates: start: 20081114, end: 20081204
  12. ACTEMRA [Suspect]
     Route: 041
     Dates: start: 20090223, end: 20090223
  13. ACTEMRA [Suspect]
     Route: 041
     Dates: start: 20090811, end: 20090811
  14. PREDNISOLONE [Suspect]
     Route: 048
     Dates: start: 20081212, end: 20081218
  15. ACTEMRA [Suspect]
     Route: 041
     Dates: start: 20090514, end: 20090514
  16. ACTEMRA [Suspect]
     Route: 041
     Dates: start: 20091104, end: 20091104
  17. PREDNISOLONE [Suspect]
     Route: 048
     Dates: start: 20081017, end: 20081030
  18. PREDNISOLONE [Suspect]
     Route: 048
     Dates: start: 20081031, end: 20081113
  19. PREDNISOLONE [Suspect]
     Route: 048
     Dates: start: 20090224, end: 20090318
  20. PREDNISOLONE [Suspect]
     Route: 048
     Dates: start: 20090319, end: 20090415
  21. ACTEMRA [Suspect]
     Route: 041
     Dates: start: 20090126, end: 20090126
  22. ACTEMRA [Suspect]
     Route: 041
     Dates: start: 20090908, end: 20090908
  23. ACTEMRA [Suspect]
     Route: 041
     Dates: start: 20090319, end: 20090319
  24. PREDNISOLONE [Suspect]
     Route: 048
     Dates: start: 20081219, end: 20090126

REACTIONS (7)
  - PNEUMONIA ASPIRATION [None]
  - PERICARDIAL EFFUSION [None]
  - CHEST X-RAY ABNORMAL [None]
  - ACUTE RESPIRATORY DISTRESS SYNDROME [None]
  - CARDIAC FAILURE [None]
  - RENAL FAILURE CHRONIC [None]
  - AZOTAEMIA [None]
